FAERS Safety Report 22227893 (Version 1)
Quarter: 2023Q2

REPORT INFORMATION
  Report Type: Report from Study
  Country: US (occurrence: US)
  Receive Date: 20230419
  Receipt Date: 20230419
  Transmission Date: 20230721
  Serious: Yes (Hospitalization)
  Sender: FDA-Public Use
  Company Number: US-GILEAD-2023-0623207

PATIENT
  Age: 53 Year
  Sex: Female

DRUGS (1)
  1. AZTREONAM LYSINE [Suspect]
     Active Substance: AZTREONAM LYSINE
     Indication: Cystic fibrosis lung
     Dosage: 75MG VIA ALTERA NEB 3 TIMES/DAY FOR 28 DAYS ON AND 28 DAYS OFF.
     Route: 055
     Dates: start: 20180626

REACTIONS (1)
  - Gastrointestinal disorder [Unknown]
